FAERS Safety Report 6249177-6 (Version None)
Quarter: 2009Q2

REPORT INFORMATION
  Report Type: 
  Country: None (occurrence: None)
  Receive Date: 20090624
  Receipt Date: 20090624
  Transmission Date: 20091009
  Serious: Yes (Other)
  Sender: FDA-Public Use
  Company Number: None

PATIENT
  Age: 53 Year
  Sex: Female
  Weight: 53.978 kg

DRUGS (3)
  1. PAXIL [Suspect]
     Indication: MAJOR DEPRESSION
     Dosage: 20 MG Q.DAY PO
     Route: 048
     Dates: start: 20021110, end: 20090619
  2. KLONOPIN [Concomitant]
  3. DETROL LA [Concomitant]

REACTIONS (7)
  - DEPRESSION [None]
  - DIARRHOEA [None]
  - DIZZINESS [None]
  - HEADACHE [None]
  - MALAISE [None]
  - PRURITUS GENERALISED [None]
  - VOMITING [None]
